FAERS Safety Report 7133047-5 (Version None)
Quarter: 2010Q4

REPORT INFORMATION
  Report Type: 
  Country: None (occurrence: None)
  Receive Date: 20101202
  Receipt Date: 20101129
  Transmission Date: 20110411
  Serious: Yes (Hospitalization)
  Sender: FDA-Public Use
  Company Number: A0896715A

PATIENT
  Age: 73 Year
  Sex: Female

DRUGS (3)
  1. ADVAIR [Suspect]
     Indication: PRODUCT USED FOR UNKNOWN INDICATION
     Route: 055
     Dates: start: 20100101
  2. THYROID MEDICATION [Concomitant]
  3. BLOOD PRESSURE MEDICATION [Concomitant]

REACTIONS (2)
  - DIPLOPIA [None]
  - DYSPNOEA [None]
